FAERS Safety Report 23669112 (Version 1)
Quarter: 2024Q1

REPORT INFORMATION
  Report Type: Spontaneous
  Country: TH (occurrence: TH)
  Receive Date: 20240325
  Receipt Date: 20240325
  Transmission Date: 20240409
  Serious: Yes (Other)
  Sender: FDA-Public Use
  Company Number: TH-STRIDES ARCOLAB LIMITED-2024SP000299

PATIENT
  Age: 64 Year
  Sex: Male

DRUGS (2)
  1. TRAMADOL [Suspect]
     Active Substance: TRAMADOL\TRAMADOL HYDROCHLORIDE
     Indication: Abdominal pain
     Dosage: UNK
     Route: 065
  2. SCOPOLAMINE [Suspect]
     Active Substance: SCOPOLAMINE
     Indication: Abdominal pain
     Dosage: UNK
     Route: 065

REACTIONS (1)
  - Therapy non-responder [Unknown]
